FAERS Safety Report 15908347 (Version 1)
Quarter: 2019Q1

REPORT INFORMATION
  Report Type: Spontaneous
  Country: US (occurrence: US)
  Receive Date: 20190204
  Receipt Date: 20190204
  Transmission Date: 20190417
  Serious: No
  Sender: FDA-Public Use
  Company Number: US-ABBVIE-18K-163-2270992-00

PATIENT
  Sex: Female

DRUGS (1)
  1. HUMIRA [Suspect]
     Active Substance: ADALIMUMAB
     Indication: MATERNAL EXPOSURE TIMING UNSPECIFIED
     Route: 058

REACTIONS (4)
  - Urinary retention [Not Recovered/Not Resolved]
  - Bladder pain [Not Recovered/Not Resolved]
  - Foetal exposure during pregnancy [Unknown]
  - Bladder spasm [Not Recovered/Not Resolved]

NARRATIVE: CASE EVENT DATE: 2016
